FAERS Safety Report 4861987-6 (Version None)
Quarter: 2005Q4

REPORT INFORMATION
  Report Type: 
  Country: None (occurrence: None)
  Receive Date: 20051129
  Receipt Date: 20050809
  Transmission Date: 20060501
  Serious: Yes (Other)
  Sender: FDA-Public Use
  Company Number: WAES 0508USA01799

PATIENT
  Age: 58 Year
  Sex: Female
  Weight: 78.4723 kg

DRUGS (2)
  1. FOSAMAX [Suspect]
     Indication: OSTEOPOROSIS
     Dosage: 70 MG/WKY/PO
     Route: 048
     Dates: start: 20050609, end: 20050621
  2. VITAMINS (UNSPECIFIED) [Concomitant]

REACTIONS (1)
  - IRITIS [None]
